FAERS Safety Report 7211543-X (Version None)
Quarter: 2011Q1

REPORT INFORMATION
  Report Type: 
  Country: None (occurrence: None)
  Receive Date: 20110105
  Receipt Date: 20101217
  Transmission Date: 20110831
  Serious: Yes (Hospitalization, Other)
  Sender: FDA-Public Use
  Company Number: CZ-TEVA-261847ISR

PATIENT
  Sex: Male

DRUGS (3)
  1. NITRENDIPINE [Concomitant]
     Indication: HYPERTENSION
     Route: 048
  2. PERINDOPRIL [Suspect]
     Indication: HYPERTENSION
     Route: 048
     Dates: start: 20101130, end: 20101209
  3. CELIPROLOL HYDROCHLORIDE [Concomitant]
     Indication: HYPERTENSION
     Route: 048

REACTIONS (1)
  - PHOTOSENSITIVITY REACTION [None]
